FAERS Safety Report 7418200-5 (Version None)
Quarter: 2011Q2

REPORT INFORMATION
  Report Type: 
  Country: None (occurrence: None)
  Receive Date: 20110415
  Receipt Date: 20110406
  Transmission Date: 20111010
  Serious: Yes (Other)
  Sender: FDA-Public Use
  Company Number: US-ASTRAZENECA-2011SE19948

PATIENT
  Age: 66 Year
  Sex: Female

DRUGS (3)
  1. OPTIV [Concomitant]
  2. NEXIUM [Suspect]
     Route: 048
  3. SYMBICORT [Suspect]
     Dosage: TOTAL DAILY DOSAGE AND FREQUENCY: UNKNOWN.
     Route: 055

REACTIONS (1)
  - CATARACT [None]
